FAERS Safety Report 6132020-3 (Version None)
Quarter: 2009Q1

REPORT INFORMATION
  Report Type: 
  Country: None (occurrence: None)
  Receive Date: 20090323
  Receipt Date: 20090305
  Transmission Date: 20090719
  Serious: Yes (Other)
  Sender: FDA-Public Use
  Company Number: 2009000852

PATIENT
  Sex: Female

DRUGS (12)
  1. MACUGEN [Suspect]
     Indication: MACULAR DEGENERATION
     Dosage: INTRA-VITREAL
     Dates: start: 20080806, end: 20090304
  2. PROTRADON (TRAMADOL HYDROCHLORIDE) [Concomitant]
  3. ZOLPIDEM [Concomitant]
  4. SORBIMON (ISOSORBIDE MONONTIRATE) [Concomitant]
  5. TROPICAMIDE [Concomitant]
  6. HOMATROPINE EYE DROPS (HOMATROPINE HYDROCHLORIDE) [Concomitant]
  7. NEO-SYNEPHRINE (PHENYLEPHRINE HYDROCHLORIDE) [Concomitant]
  8. BENOXIL (OXYBUPROCAINE) [Concomitant]
  9. TETRACAIN (TETRACINE HYDROCHLORIDE) [Concomitant]
  10. DITHIADEN (BISULEPIN HYDROCHLORIDE) [Concomitant]
  11. POVIDONE IODINE [Concomitant]
  12. FLOXAL EYEDROPS (FLOXAL EYEDROPS) [Concomitant]

REACTIONS (2)
  - PRURITUS [None]
  - RASH GENERALISED [None]
